FAERS Safety Report 9646417 (Version 1)
Quarter: 2013Q4

REPORT INFORMATION
  Report Type: Spontaneous
  Country: GB (occurrence: GB)
  Receive Date: 20131025
  Receipt Date: 20131025
  Transmission Date: 20140711
  Serious: Yes (Other)
  Sender: FDA-Public Use
  Company Number: PHHY2013GB117667

PATIENT
  Age: 14 Year
  Sex: Male
  Weight: 182 kg

DRUGS (2)
  1. PROPRANOLOL HYDROCHLORIDE [Suspect]
     Indication: MIGRAINE
     Dosage: 30 MG, BID
     Route: 048
     Dates: start: 20131001
  2. SUMATRIPTAN SUCCINATE [Concomitant]

REACTIONS (2)
  - Dyspnoea [Not Recovered/Not Resolved]
  - Headache [Not Recovered/Not Resolved]
